FAERS Safety Report 14857051 (Version 4)
Quarter: 2018Q2

REPORT INFORMATION
  Report Type: Spontaneous
  Country: JP (occurrence: JP)
  Receive Date: 20180507
  Receipt Date: 20180626
  Transmission Date: 20180711
  Serious: Yes (Hospitalization, Other)
  Sender: FDA-Public Use
  Company Number: JP-009507513-1804JPN001258J

PATIENT
  Age: 75 Year
  Sex: Male
  Weight: 56 kg

DRUGS (5)
  1. TAKECAB [Suspect]
     Active Substance: VONOPRAZAN FUMURATE
     Indication: GASTRITIS
     Dosage: 10 MG, QD
     Route: 048
     Dates: start: 20180312, end: 20180412
  2. ZETIA [Concomitant]
     Active Substance: EZETIMIBE
     Indication: HYPERLIPIDAEMIA
     Dosage: 10 MG, QD
     Route: 048
     Dates: start: 20180312, end: 20180428
  3. CEPHADOL [Suspect]
     Active Substance: DIPHENIDOL HYDROCHLORIDE
     Indication: DIZZINESS
     Dosage: 25 MG, TID
     Route: 048
     Dates: start: 20180410, end: 20180427
  4. REBAMIPIDE [Suspect]
     Active Substance: REBAMIPIDE
     Indication: GASTRITIS
     Dosage: 100 MG, TID
     Route: 048
     Dates: start: 20180312, end: 20180411
  5. KEYTRUDA [Suspect]
     Active Substance: PEMBROLIZUMAB
     Indication: LUNG ADENOCARCINOMA
     Dosage: 200 MG, Q3W
     Route: 041
     Dates: start: 20180313, end: 20180313

REACTIONS (3)
  - Histiocytosis haematophagic [Recovered/Resolved]
  - Hepatic function abnormal [Unknown]
  - Pyrexia [Recovered/Resolved]

NARRATIVE: CASE EVENT DATE: 20180322
